FAERS Safety Report 15069507 (Version 1)
Quarter: 2018Q3

REPORT INFORMATION
  Report Type: Other
  Country: FR (occurrence: FR)
  Receive Date: 20180626
  Receipt Date: 20180626
  Transmission Date: 20181010
  Serious: Yes (Hospitalization)
  Sender: FDA-Public Use
  Company Number: FR-REGULIS-2049975

PATIENT
  Age: 69 Year
  Sex: Female

DRUGS (3)
  1. CEFAZOLINE MERCK [Suspect]
     Active Substance: CEFAZOLIN SODIUM
     Route: 042
     Dates: start: 20180112, end: 20180112
  2. PROVEBLUE [Suspect]
     Active Substance: METHYLENE BLUE
     Route: 042
     Dates: start: 20180112, end: 20180112
  3. DEXAMETHASONE. [Suspect]
     Active Substance: DEXAMETHASONE
     Route: 042
     Dates: start: 20180112, end: 20180112

REACTIONS (4)
  - Hypotension [Recovered/Resolved]
  - Oxygen saturation decreased [Recovered/Resolved]
  - Shock [Recovered/Resolved]
  - Off label use [Recovered/Resolved]

NARRATIVE: CASE EVENT DATE: 20180112
